FAERS Safety Report 7493151-9 (Version None)
Quarter: 2011Q2

REPORT INFORMATION
  Report Type: 
  Country: None (occurrence: None)
  Receive Date: 20110519
  Receipt Date: 20110519
  Transmission Date: 20111010
  Serious: No
  Sender: FDA-Public Use
  Company Number: None

PATIENT
  Sex: Female
  Weight: 61.2356 kg

DRUGS (1)
  1. IMPLANON [Suspect]
     Indication: CONTRACEPTION
     Dosage: 68MG DAILY SUBDERMAL
     Route: 059
     Dates: start: 20100901, end: 20110518

REACTIONS (4)
  - MENSTRUATION IRREGULAR [None]
  - DISCOMFORT [None]
  - BIPOLAR DISORDER [None]
  - DEPRESSION [None]
